FAERS Safety Report 4730883-7 (Version None)
Quarter: 2005Q3

REPORT INFORMATION
  Report Type: 
  Country: None (occurrence: None)
  Receive Date: 20050728
  Receipt Date: 20050517
  Transmission Date: 20060218
  Serious: Yes (Death, Hospitalization)
  Sender: FDA-Public Use
  Company Number: ZICO001095

PATIENT
  Age: 42 Year
  Sex: Male
  Weight: 70.7611 kg

DRUGS (14)
  1. PRIALT [Suspect]
     Indication: PAIN
     Dosage: 0.0 MCG/HR INTRATHECAL
     Route: 037
     Dates: start: 20040526, end: 20040609
  2. FLOMAX [Concomitant]
  3. NEURONTIN [Concomitant]
  4. MARINOL [Concomitant]
  5. WELLBUTRIN [Concomitant]
  6. TOPRAL (SULTOPRIDE) [Concomitant]
  7. PROCRIT [Concomitant]
  8. LASIX [Concomitant]
  9. NALTREXONE SOLUTION (NALTREXONE SOLUTION) [Concomitant]
  10. VALIUM [Concomitant]
  11. PROTONIX [Concomitant]
  12. MS CONTIN [Concomitant]
  13. DILAUDID [Concomitant]
  14. CLONIDINE [Concomitant]

REACTIONS (2)
  - CARDIAC ARREST [None]
  - CONVULSION [None]
